FAERS Safety Report 10823413 (Version 1)
Quarter: 2015Q1

REPORT INFORMATION
  Report Type: Report from Study
  Country: US (occurrence: US)
  Receive Date: 20150218
  Receipt Date: 20150218
  Transmission Date: 20150721
  Serious: No
  Sender: FDA-Public Use
  Company Number: US-ABBVIE-14K-163-1308942-00

PATIENT
  Age: 57 Year
  Sex: Female
  Weight: 49.94 kg

DRUGS (2)
  1. HUMIRA [Suspect]
     Active Substance: ADALIMUMAB
     Indication: PSORIASIS
  2. HUMIRA [Suspect]
     Active Substance: ADALIMUMAB
     Indication: PSORIATIC ARTHROPATHY
     Route: 065
     Dates: start: 20140605, end: 20141002

REACTIONS (8)
  - Candida infection [Recovered/Resolved]
  - Tooth abscess [Recovered/Resolved]
  - Ligament rupture [Recovering/Resolving]
  - Laryngitis [Recovered/Resolved]
  - Fall [Recovering/Resolving]
  - Pneumonia [Recovered/Resolved]
  - Foot fracture [Recovering/Resolving]
  - Viral infection [Recovered/Resolved]

NARRATIVE: CASE EVENT DATE: 201406
